FAERS Safety Report 24983134 (Version 1)
Quarter: 2025Q1

REPORT INFORMATION
  Report Type: Spontaneous
  Country: US (occurrence: US)
  Receive Date: 20250218
  Receipt Date: 20250218
  Transmission Date: 20250408
  Serious: No
  Sender: ROCHE
  Company Number: US-ROCHE-10000209066

PATIENT
  Sex: Female

DRUGS (5)
  1. XOLAIR [Suspect]
     Active Substance: OMALIZUMAB
     Indication: Asthma
     Dosage: ONGOING
     Route: 058
     Dates: start: 202408
  2. EPINEPHRINE [Concomitant]
     Active Substance: EPINEPHRINE
  3. xembify sdv [Concomitant]
  4. ONDANSETRON HYDROCHLORIDE [Concomitant]
     Active Substance: ONDANSETRON HYDROCHLORIDE
  5. TYMLOS PF PEN [Concomitant]
     Indication: Senile osteoporosis

REACTIONS (2)
  - Influenza [Unknown]
  - Asthma [Unknown]
